FAERS Safety Report 12548255 (Version 4)
Quarter: 2016Q3

REPORT INFORMATION
  Report Type: Report from Study
  Country: CA (occurrence: CA)
  Receive Date: 20160712
  Receipt Date: 20160908
  Transmission Date: 20161109
  Serious: Yes (Other)
  Sender: FDA-Public Use
  Company Number: CA-JNJFOC-20160705584

PATIENT
  Age: 63 Year
  Sex: Female
  Weight: 162 kg

DRUGS (1)
  1. SIMPONI [Suspect]
     Active Substance: GOLIMUMAB
     Indication: RHEUMATOID ARTHRITIS
     Route: 042

REACTIONS (4)
  - Product use issue [Unknown]
  - Off label use [Unknown]
  - Rheumatoid arthritis [Unknown]
  - Abscess oral [Not Recovered/Not Resolved]

NARRATIVE: CASE EVENT DATE: 20160630
